FAERS Safety Report 10236921 (Version 1)
Quarter: 2014Q2

REPORT INFORMATION
  Report Type: Spontaneous
  Country: CA (occurrence: CA)
  Receive Date: 20140613
  Receipt Date: 20140613
  Transmission Date: 20141212
  Serious: Yes (Other)
  Sender: FDA-Public Use
  Company Number: CA-009507513-1406CAN006278

PATIENT
  Age: 60 Year
  Sex: Male

DRUGS (7)
  1. VICTRELIS [Suspect]
     Indication: CHRONIC HEPATITIS C
     Dosage: 800 MG, TID
     Route: 048
     Dates: start: 20131128, end: 20140416
  2. PEGASYS [Suspect]
     Indication: CHRONIC HEPATITIS C
     Dosage: 180 MICROGRAM, QW
     Route: 058
     Dates: start: 20131031, end: 20140604
  3. COPEGUS [Suspect]
     Indication: CHRONIC HEPATITIS C
     Dosage: 1400 MG, 49 TABLETS/WEEK
     Route: 048
     Dates: start: 20131031, end: 20140604
  4. CYANOCOBALAMIN [Concomitant]
     Route: 065
  5. CALCIUM (UNSPECIFIED) [Concomitant]
     Route: 048
  6. MAGNESIUM (UNSPECIFIED) [Concomitant]
     Route: 048
  7. VITAMINS (UNSPECIFIED) [Concomitant]
     Route: 048

REACTIONS (4)
  - Retinal detachment [Not Recovered/Not Resolved]
  - Hepatitis C [Not Recovered/Not Resolved]
  - Hypertension [Unknown]
  - Testicular pain [Not Recovered/Not Resolved]
